FAERS Safety Report 5110065-X (Version None)
Quarter: 2006Q3

REPORT INFORMATION
  Report Type: 
  Country: None (occurrence: None)
  Receive Date: 20060919
  Receipt Date: 20060919
  Transmission Date: 20061208
  Serious: No
  Sender: FDA-Public Use
  Company Number: None

PATIENT
  Sex: Female

DRUGS (1)
  1. REBIF [Suspect]
     Indication: MULTIPLE SCLEROSIS
     Dosage: 44MCG   TIW   SQ
     Route: 058
     Dates: start: 20060413, end: 20060918

REACTIONS (2)
  - DYSPNOEA [None]
  - RASH [None]
